FAERS Safety Report 16973435 (Version 1)
Quarter: 2019Q4

REPORT INFORMATION
  Report Type: Spontaneous
  Country: US (occurrence: US)
  Receive Date: 20190912
  Receipt Date: 20190912
  Transmission Date: 20200122
  Serious: No
  Sender: FDA-Public Use
  Company Number: None

PATIENT
  Age: 48 Year
  Sex: Female

DRUGS (1)
  1. REMICADE [Suspect]
     Active Substance: INFLIXIMAB
     Route: 042
     Dates: start: 201801, end: 201807

REACTIONS (5)
  - Impaired healing [None]
  - Pain in extremity [None]
  - Renal disorder [None]
  - Overdose [None]
  - Drug ineffective [None]

NARRATIVE: CASE EVENT DATE: 20180718
